FAERS Safety Report 24073921 (Version 1)
Quarter: 2024Q3

REPORT INFORMATION
  Report Type: Report from Study
  Country: CA (occurrence: CA)
  Receive Date: 20240710
  Receipt Date: 20240710
  Transmission Date: 20241016
  Serious: Yes (Other)
  Sender: PIERRE FABRE MEDICAMENT
  Company Number: CA-PFM-2021-01784

PATIENT
  Age: 51 Year
  Sex: Male

DRUGS (8)
  1. PROPRANOLOL HYDROCHLORIDE [Suspect]
     Active Substance: PROPRANOLOL HYDROCHLORIDE
     Indication: Headache
     Dosage: 50 MG, BID (2/DAY)
     Route: 048
  2. PROPRANOLOL HYDROCHLORIDE [Suspect]
     Active Substance: PROPRANOLOL HYDROCHLORIDE
     Indication: Off label use
  3. ERENUMAB-AOOE [Suspect]
     Active Substance: ERENUMAB-AOOE
     Indication: Migraine
     Dosage: 140 MG, MONTHLY
     Route: 058
  4. ERENUMAB-AOOE [Suspect]
     Active Substance: ERENUMAB-AOOE
     Dosage: 70 MG, MONTHLY
     Route: 058
  5. CAMBIA [Concomitant]
     Active Substance: DICLOFENAC POTASSIUM
     Indication: Headache
     Dosage: 50 MG, BID (2/DAY)
     Route: 048
  6. GABAPENTIN [Concomitant]
     Active Substance: GABAPENTIN
     Indication: Migraine prophylaxis
     Dosage: 300 MG, UNKNOWN
     Route: 048
  7. TOPIRAMATE [Concomitant]
     Active Substance: TOPIRAMATE
     Indication: Headache
     Dosage: 25 MG, UNKNOWN
     Route: 065
  8. TORADOL [Concomitant]
     Active Substance: KETOROLAC TROMETHAMINE
     Indication: Headache
     Dosage: 10 MG, TID (3/DAY)
     Route: 048

REACTIONS (11)
  - Gastric ulcer [Unknown]
  - Intervertebral disc protrusion [Unknown]
  - Memory impairment [Unknown]
  - Productive cough [Unknown]
  - Cough [Unknown]
  - Sleep apnoea syndrome [Unknown]
  - Tongue disorder [Unknown]
  - Drug ineffective [Unknown]
  - Product use in unapproved indication [Unknown]
  - Product use issue [Unknown]
  - Off label use [Unknown]
